FAERS Safety Report 16466565 (Version 1)
Quarter: 2019Q2

REPORT INFORMATION
  Report Type: Report from Study
  Country: US (occurrence: US)
  Receive Date: 20190623
  Receipt Date: 20190623
  Transmission Date: 20190711
  Serious: Yes (Death, Hospitalization, Other)
  Sender: FDA-Public Use
  Company Number: PHHY2019US141825

PATIENT
  Age: 1 Year
  Sex: Female
  Weight: 14.4 kg

DRUGS (4)
  1. TRAMETINIB [Suspect]
     Active Substance: TRAMETINIB
     Dosage: 0.4 MG, QD
     Route: 048
     Dates: start: 20190422
  2. GSK2118436 [Suspect]
     Active Substance: DABRAFENIB
     Dosage: 34 MG, BID
     Route: 048
     Dates: start: 20190422, end: 20190422
  3. TRAMETINIB [Suspect]
     Active Substance: TRAMETINIB
     Indication: LANGERHANS^ CELL HISTIOCYTOSIS
     Dosage: 0.4 MG, QD
     Route: 048
     Dates: start: 20180918, end: 20190201
  4. GSK2118436 [Suspect]
     Active Substance: DABRAFENIB
     Indication: LANGERHANS^ CELL HISTIOCYTOSIS
     Dosage: 34 MG, BID
     Route: 048
     Dates: start: 20180918

REACTIONS (16)
  - Candida pneumonia [Fatal]
  - Langerhans^ cell histiocytosis [Fatal]
  - Bone marrow failure [Fatal]
  - Coagulopathy [Fatal]
  - Fungaemia [Fatal]
  - Viral infection [Unknown]
  - Influenza [Not Recovered/Not Resolved]
  - Neutropenia [Unknown]
  - Liver function test increased [Unknown]
  - Malignant neoplasm progression [Fatal]
  - Respiratory failure [Not Recovered/Not Resolved]
  - Nasal congestion [Unknown]
  - Multiple organ dysfunction syndrome [Fatal]
  - Diarrhoea [Unknown]
  - Cough [Unknown]
  - Renal failure [Fatal]

NARRATIVE: CASE EVENT DATE: 20190124
